FAERS Safety Report 5367314-2 (Version None)
Quarter: 2007Q2

REPORT INFORMATION
  Report Type: 
  Country: None (occurrence: None)
  Receive Date: 20070622
  Receipt Date: 20070613
  Transmission Date: 20071010
  Serious: Yes (Other)
  Sender: FDA-Public Use
  Company Number: BR-ASTRAZENECA-2007UW14606

PATIENT
  Age: 25667 Day
  Sex: Female

DRUGS (6)
  1. FASLODEX [Suspect]
     Indication: BREAST CANCER FEMALE
     Route: 030
     Dates: start: 20070319
  2. OMEPRAZOLE [Concomitant]
     Indication: PROPHYLAXIS AGAINST GASTROINTESTINAL ULCER
     Dates: start: 20070404
  3. RIVOTRIL [Concomitant]
     Dates: start: 20070101
  4. MORPHINE [Concomitant]
     Indication: CHEST PAIN
     Route: 048
     Dates: start: 20070404
  5. HYDROCHLOROTHIAZIDE [Concomitant]
     Indication: HYPERTENSION
     Route: 048
  6. AMITRIPTYLINE HCL [Concomitant]
     Indication: INSOMNIA
     Route: 048

REACTIONS (1)
  - PLEURAL EFFUSION [None]
